FAERS Safety Report 11827438 (Version 1)
Quarter: 2015Q4

REPORT INFORMATION
  Report Type: Spontaneous
  Country: None (occurrence: FR)
  Receive Date: 20151211
  Receipt Date: 20151211
  Transmission Date: 20160305
  Serious: Yes (Hospitalization)
  Sender: FDA-Public Use
  Company Number: FR-MEDAC PHARMA, INC.-1045383

PATIENT
  Age: 26 Year
  Sex: Female

DRUGS (8)
  1. LEVONORGESTREL AND ETHINYL ESTRADOIL [Concomitant]
     Active Substance: ETHINYL ESTRADIOL\LEVONORGESTREL
  2. METOJECT [Suspect]
     Active Substance: METHOTREXATE SODIUM
     Indication: ANKYLOSING SPONDYLITIS
     Route: 058
     Dates: start: 20150824
  3. ACETAMINOPHEN. [Concomitant]
     Active Substance: ACETAMINOPHEN
  4. ACUPAN [Concomitant]
     Active Substance: NEFOPAM HYDROCHLORIDE
  5. SIMPONI [Suspect]
     Active Substance: GOLIMUMAB
     Route: 048
     Dates: start: 2013, end: 2015
  6. FOLIC ACID. [Concomitant]
     Active Substance: FOLIC ACID
  7. TRAMADOL HYDROCHLORIDE. [Concomitant]
     Active Substance: TRAMADOL HYDROCHLORIDE
  8. PENTASA [Suspect]
     Active Substance: MESALAMINE
     Route: 048

REACTIONS (2)
  - Polymyositis [Not Recovered/Not Resolved]
  - Product use issue [None]

NARRATIVE: CASE EVENT DATE: 20151013
